FAERS Safety Report 5313069-7 (Version None)
Quarter: 2007Q2

REPORT INFORMATION
  Report Type: 
  Country: None (occurrence: None)
  Receive Date: 20070430
  Receipt Date: 20070419
  Transmission Date: 20071010
  Serious: Yes (Hospitalization)
  Sender: FDA-Public Use
  Company Number: JP-PFIZER INC-2007027931

PATIENT
  Sex: Female
  Weight: 22 kg

DRUGS (6)
  1. ZITHROMAC [Suspect]
     Indication: RESPIRATORY TRACT INFECTION
     Dosage: DAILY DOSE:2GRAM
     Route: 048
     Dates: start: 20070326, end: 20070327
  2. ZITHROMAC [Suspect]
     Indication: BRONCHITIS
  3. HOKUNALIN [Concomitant]
     Dates: start: 20070326, end: 20070328
  4. SENEGA [Concomitant]
     Route: 048
     Dates: start: 20070326, end: 20070328
  5. ASVERIN [Concomitant]
     Route: 048
     Dates: start: 20070326, end: 20070328
  6. BROCIN [Concomitant]
     Route: 048
     Dates: start: 20070326, end: 20070328

REACTIONS (2)
  - ABNORMAL BEHAVIOUR [None]
  - BLOOD CREATINE PHOSPHOKINASE INCREASED [None]
